FAERS Safety Report 6071610-3 (Version None)
Quarter: 2009Q1

REPORT INFORMATION
  Report Type: 
  Country: None (occurrence: None)
  Receive Date: 20090209
  Receipt Date: 20090209
  Transmission Date: 20090719
  Serious: Yes (Other)
  Sender: FDA-Public Use
  Company Number: None

PATIENT
  Sex: Female
  Weight: 81.6475 kg

DRUGS (2)
  1. EVISTA [Suspect]
     Indication: BONE DISORDER
     Dosage: 1 TABLET DAILY
     Dates: end: 20080601
  2. EVISTA [Suspect]
     Indication: MENOPAUSAL SYMPTOMS
     Dosage: 1 TABLET DAILY
     Dates: end: 20080601

REACTIONS (2)
  - OEDEMA PERIPHERAL [None]
  - PAIN IN EXTREMITY [None]
